FAERS Safety Report 18554656 (Version 2)
Quarter: 2022Q1

REPORT INFORMATION
  Report Type: Spontaneous
  Country: FR (occurrence: FR)
  Receive Date: 20201127
  Receipt Date: 20220125
  Transmission Date: 20220423
  Serious: Yes (Hospitalization)
  Sender: FDA-Public Use
  Company Number: None

PATIENT
  Age: 69 Year
  Sex: Male
  Weight: 90 kg

DRUGS (1)
  1. IFOSFAMIDE [Suspect]
     Active Substance: IFOSFAMIDE
     Indication: Follicular lymphoma
     Route: 041
     Dates: start: 20201011, end: 20201030

REACTIONS (2)
  - Condition aggravated [Recovered/Resolved]
  - Diabetes insipidus [Recovered/Resolved]

NARRATIVE: CASE EVENT DATE: 20201001
